FAERS Safety Report 4719499-6 (Version None)
Quarter: 2005Q3

REPORT INFORMATION
  Report Type: 
  Country: None (occurrence: None)
  Receive Date: 20050719
  Receipt Date: 20050719
  Transmission Date: 20060218
  Serious: Yes (Other)
  Sender: FDA-Public Use
  Company Number: None

PATIENT
  Age: 35 Year
  Sex: Female
  Weight: 68.0396 kg

DRUGS (1)
  1. ORTHO EVRA [Suspect]
     Dosage: TRANSDERMAL
     Dates: start: 20030630, end: 20030731

REACTIONS (5)
  - ASTHENIA [None]
  - CONSTIPATION [None]
  - DEPRESSION [None]
  - MUSCLE SPASMS [None]
  - WEIGHT INCREASED [None]
